FAERS Safety Report 8079443-3 (Version None)
Quarter: 2012Q1

REPORT INFORMATION
  Report Type: 
  Country: None (occurrence: None)
  Receive Date: 20120128
  Receipt Date: 20110825
  Transmission Date: 20120608
  Serious: No
  Sender: FDA-Public Use
  Company Number: US-ABBOTT-11P-163-0849331-00

PATIENT
  Age: 22 Year
  Sex: Female

DRUGS (4)
  1. HUMIRA [Suspect]
     Dosage: NOT REPORTED
  2. ATIVAN [Concomitant]
     Indication: INSOMNIA
     Dosage: EVERY NIGHT
  3. HUMIRA [Suspect]
     Indication: CROHN'S DISEASE
     Dosage: LOADING DOSE
     Dates: start: 20110818, end: 20110818
  4. TRAMADOL HCL [Concomitant]
     Indication: ARTHRALGIA
     Dosage: PRN

REACTIONS (5)
  - INCORRECT DOSE ADMINISTERED [None]
  - WRONG TECHNIQUE IN DRUG USAGE PROCESS [None]
  - INJECTION SITE SWELLING [None]
  - INJECTION SITE PAIN [None]
  - INJECTION SITE ERYTHEMA [None]
